FAERS Safety Report 17827827 (Version 1)
Quarter: 2020Q2

REPORT INFORMATION
  Report Type: Spontaneous
  Country: US (occurrence: US)
  Receive Date: 20200526
  Receipt Date: 20200526
  Transmission Date: 20200714
  Serious: Yes (Hospitalization, Other)
  Sender: FDA-Public Use
  Company Number: None

PATIENT
  Age: 85 Year
  Sex: Female
  Weight: 88.2 kg

DRUGS (17)
  1. LISINOPRIL. [Concomitant]
     Active Substance: LISINOPRIL
  2. METOPROLOL. [Concomitant]
     Active Substance: METOPROLOL
  3. TOUJEO [Concomitant]
     Active Substance: INSULIN GLARGINE
  4. ALLOPURINOL. [Concomitant]
     Active Substance: ALLOPURINOL
  5. ACYCLOVIR. [Concomitant]
     Active Substance: ACYCLOVIR
  6. POMALYST [Concomitant]
     Active Substance: POMALIDOMIDE
  7. NINLARO [Suspect]
     Active Substance: IXAZOMIB CITRATE
     Indication: PLASMA CELL MYELOMA
     Dosage: ?          OTHER FREQUENCY:ONCE WEEKLY;?
     Route: 048
     Dates: start: 20190306
  8. ELIQUIS [Concomitant]
     Active Substance: APIXABAN
  9. CARTIA XT [Concomitant]
     Active Substance: DILTIAZEM HYDROCHLORIDE
  10. VITAMIN D [Concomitant]
     Active Substance: VITAMIN D NOS
  11. LEVOTHYROXINE. [Concomitant]
     Active Substance: LEVOTHYROXINE
  12. ATORVASTATIN [Concomitant]
     Active Substance: ATORVASTATIN
  13. BUMETANIDE. [Concomitant]
     Active Substance: BUMETANIDE
  14. ANASTROZOLE. [Concomitant]
     Active Substance: ANASTROZOLE
  15. NOVOLOG [Concomitant]
     Active Substance: INSULIN ASPART
  16. SYNTHROID [Concomitant]
     Active Substance: LEVOTHYROXINE SODIUM
  17. DIGOXIN. [Concomitant]
     Active Substance: DIGOXIN

REACTIONS (1)
  - Hip fracture [None]
